FAERS Safety Report 23443885 (Version 1)
Quarter: 2024Q1

REPORT INFORMATION
  Report Type: Spontaneous
  Country: CZ (occurrence: CZ)
  Receive Date: 20240125
  Receipt Date: 20240125
  Transmission Date: 20240410
  Serious: Yes (Hospitalization, Other)
  Sender: FDA-Public Use
  Company Number: None

PATIENT
  Age: 18 Year
  Sex: Female

DRUGS (3)
  1. CLINDAMYCIN PHOSPHATE [Suspect]
     Active Substance: CLINDAMYCIN PHOSPHATE
     Indication: Tooth disorder
     Dosage: UNK
  2. CLINDAMYCIN PHOSPHATE [Suspect]
     Active Substance: CLINDAMYCIN PHOSPHATE
     Indication: Toothache
  3. QUETIAPINE [Suspect]
     Active Substance: QUETIAPINE
     Indication: Autism spectrum disorder
     Dosage: LONG-TERM, STABILIZED FOR 18 MONTHS (WITHOUT COMPLIACTIONS)

REACTIONS (4)
  - Delusion [Unknown]
  - Agitation [Unknown]
  - Insomnia [Unknown]
  - Psychotic disorder [Unknown]
